FAERS Safety Report 7551407-5 (Version None)
Quarter: 2011Q2

REPORT INFORMATION
  Report Type: 
  Country: None (occurrence: None)
  Receive Date: 20110616
  Receipt Date: 20110601
  Transmission Date: 20111010
  Serious: Yes (Other)
  Sender: FDA-Public Use
  Company Number: CA-JNJFOC-20100801172

PATIENT
  Sex: Male
  Weight: 103 kg

DRUGS (10)
  1. REMICADE [Suspect]
     Route: 042
  2. FOLIC ACID [Concomitant]
     Route: 048
  3. REMICADE [Suspect]
     Route: 042
     Dates: start: 20070301
  4. FOSAMAX [Concomitant]
  5. REMICADE [Suspect]
     Route: 042
  6. REMICADE [Suspect]
     Route: 042
  7. ASPIRIN [Concomitant]
     Indication: CARDIAC DISORDER
     Route: 048
  8. REMICADE [Suspect]
     Indication: POLYARTHRITIS
     Route: 042
  9. REMICADE [Suspect]
     Route: 042
     Dates: start: 20100803
  10. REMICADE [Suspect]
     Route: 042

REACTIONS (3)
  - NEPHROLITHIASIS [None]
  - PALLOR [None]
  - RHEUMATOID ARTHRITIS [None]
